FAERS Safety Report 7226877-2 (Version None)
Quarter: 2011Q1

REPORT INFORMATION
  Report Type: 
  Country: None (occurrence: None)
  Receive Date: 20110114
  Receipt Date: 20101008
  Transmission Date: 20110831
  Serious: No
  Sender: FDA-Public Use
  Company Number: US-BAYER-201022398BCC

PATIENT
  Sex: Male
  Weight: 90.909 kg

DRUGS (5)
  1. METOPROLOL [Concomitant]
     Dosage: 50 MG, UNK
  2. ALEVE [Suspect]
     Indication: PAIN
     Dosage: UNK
     Route: 048
  3. ASPIRIN [Concomitant]
  4. LOVAZA [Concomitant]
     Dosage: 1000 MG, UNK
  5. LIPITOR [Concomitant]
     Dosage: 15 MG, UNK

REACTIONS (1)
  - DYSGEUSIA [None]
